FAERS Safety Report 7527714-9 (Version None)
Quarter: 2011Q2

REPORT INFORMATION
  Report Type: 
  Country: None (occurrence: None)
  Receive Date: 20110607
  Receipt Date: 20110524
  Transmission Date: 20111010
  Serious: Yes (Other)
  Sender: FDA-Public Use
  Company Number: CA-JNJFOC-20110512047

PATIENT
  Sex: Male

DRUGS (2)
  1. REMICADE [Suspect]
     Indication: DRUG EXPOSURE DURING PREGNANCY
     Route: 064
     Dates: start: 20110506
  2. REMICADE [Suspect]
     Route: 064
     Dates: start: 20100729

REACTIONS (3)
  - UMBILICAL CORD AROUND NECK [None]
  - JAUNDICE [None]
  - HEART RATE DECREASED [None]
